FAERS Safety Report 8880181 (Version 1)
Quarter: 2012Q4

REPORT INFORMATION
  Report Type: 
  Country: FR (occurrence: FR)
  Receive Date: 20121101
  Receipt Date: 20121101
  Transmission Date: 20130627
  Serious: Yes (Other)
  Sender: FDA-Public Use
  Company Number: PHHO2012FR014333

PATIENT
  Age: 4 Year
  Sex: Male
  Weight: 20.4 kg

DRUGS (5)
  1. AFINITOR [Suspect]
     Indication: ASTROCYTOMA, LOW GRADE
     Dosage: 5 mg, QD
     Route: 048
     Dates: start: 20120215
  2. SABRIL [Concomitant]
     Indication: EPILEPSY
     Dosage: 2.5 g, QD (1g morning and 1.5 g evening)
     Route: 048
     Dates: start: 20080418
  3. LAMICTAL [Concomitant]
     Indication: EPILEPSY
     Dosage: 100 mg, BID
     Route: 048
     Dates: start: 20100122
  4. RISPERDAL [Concomitant]
     Indication: ABNORMAL BEHAVIOUR
     Dosage: 1.25 ml, BID
     Route: 048
     Dates: start: 20100218
  5. KETOGAN [Concomitant]
     Indication: EPILEPSY
     Dosage: UNK
     Dates: start: 20090728

REACTIONS (1)
  - Subdural haematoma [Unknown]
